FAERS Safety Report 6931428-3 (Version None)
Quarter: 2010Q3

REPORT INFORMATION
  Report Type: 
  Country: None (occurrence: None)
  Receive Date: 20100819
  Receipt Date: 20100806
  Transmission Date: 20110219
  Serious: Yes (Other)
  Sender: FDA-Public Use
  Company Number: US-ELI_LILLY_AND_COMPANY-US201007003086

PATIENT
  Sex: Female

DRUGS (4)
  1. HUMALOG [Suspect]
     Indication: DIABETES MELLITUS
     Dosage: 15 U, 3/D
     Dates: start: 20100704
  2. HUMALOG [Suspect]
     Dosage: 15 U, 3/D
  3. ADVIL LIQUI-GELS [Concomitant]
     Indication: ARTHRITIS
     Route: 048
  4. LANTUS [Concomitant]
     Dosage: 50 U, UNKNOWN

REACTIONS (12)
  - ARTHRITIS [None]
  - ASTHENIA [None]
  - BLINDNESS UNILATERAL [None]
  - BLOOD GLUCOSE DECREASED [None]
  - BLOOD GLUCOSE INCREASED [None]
  - DIABETIC RETINOPATHY [None]
  - DRUG INEFFECTIVE [None]
  - EYE OPERATION COMPLICATION [None]
  - FAT TISSUE INCREASED [None]
  - FEELING ABNORMAL [None]
  - MACULAR OEDEMA [None]
  - RETINAL DETACHMENT [None]
